FAERS Safety Report 13260914 (Version 2)
Quarter: 2017Q1

REPORT INFORMATION
  Report Type: Spontaneous
  Country: US (occurrence: US)
  Receive Date: 20170222
  Receipt Date: 20170321
  Transmission Date: 20170428
  Serious: Yes (Other)
  Sender: FDA-Public Use
  Company Number: US-BAYER-2017-035072

PATIENT
  Age: 51 Year
  Sex: Female

DRUGS (1)
  1. MIRENA [Suspect]
     Active Substance: LEVONORGESTREL
     Indication: CONTRACEPTION
     Dosage: 20 MCG/24HR, CONT
     Route: 015
     Dates: start: 20170207, end: 20170220

REACTIONS (4)
  - Endometrial hyperplasia [None]
  - Uterine leiomyoma [None]
  - Device dislocation [None]
  - Menorrhagia [None]

NARRATIVE: CASE EVENT DATE: 201702
